FAERS Safety Report 4604940-X (Version None)
Quarter: 2005Q1

REPORT INFORMATION
  Report Type: 
  Country: None (occurrence: None)
  Receive Date: 20050309
  Receipt Date: 20050309
  Transmission Date: 20050727
  Serious: Yes (Hospitalization)
  Sender: FDA-Public Use
  Company Number: None

PATIENT
  Sex: Male
  Weight: 84.37 kg

DRUGS (1)
  1. DEPAKOTE ER [Suspect]
     Dosage: SEE IMAGE
     Route: 048
     Dates: start: 20040727, end: 20050112

REACTIONS (2)
  - CONFUSIONAL STATE [None]
  - SEDATION [None]
